FAERS Safety Report 7282900-0 (Version None)
Quarter: 2011Q1

REPORT INFORMATION
  Report Type: 
  Country: None (occurrence: None)
  Receive Date: 20110209
  Receipt Date: 20110202
  Transmission Date: 20110831
  Serious: Yes (Death, Hospitalization)
  Sender: FDA-Public Use
  Company Number: TN-BAYER-2011-010626

PATIENT
  Age: 26 Year
  Sex: Female

DRUGS (1)
  1. JASMINE [Suspect]
     Indication: PRODUCT USED FOR UNKNOWN INDICATION
     Dosage: UNK
     Route: 048
     Dates: start: 20090101, end: 20110101

REACTIONS (4)
  - PULMONARY EMBOLISM [None]
  - COMA [None]
  - CARDIAC ARREST [None]
  - CHEST PAIN [None]
